FAERS Safety Report 10041014 (Version 4)
Quarter: 2014Q4

REPORT INFORMATION
  Report Type: Spontaneous
  Country: US (occurrence: US)
  Receive Date: 20140327
  Receipt Date: 20141210
  Transmission Date: 20150528
  Serious: No
  Sender: FDA-Public Use
  Company Number: US-PFIZER INC-2014087633

PATIENT
  Age: 57 Year
  Sex: Female
  Weight: 84 kg

DRUGS (4)
  1. LYRICA [Suspect]
     Active Substance: PREGABALIN
     Indication: NERVE INJURY
  2. LYRICA [Suspect]
     Active Substance: PREGABALIN
     Indication: FIBROMYALGIA
     Dosage: 150 MG 3X/DAY
     Dates: start: 2011, end: 201403
  3. LYRICA [Suspect]
     Active Substance: PREGABALIN
     Indication: NEURALGIA
  4. METFORMIN [Concomitant]
     Active Substance: METFORMIN HYDROCHLORIDE
     Indication: DIABETES MELLITUS
     Dosage: 100 MG, 3X/DAY

REACTIONS (6)
  - Hypoaesthesia [Unknown]
  - Temperature intolerance [Unknown]
  - Pain [Unknown]
  - Pain in extremity [Unknown]
  - Restless legs syndrome [Unknown]
  - Burning sensation [Unknown]

NARRATIVE: CASE EVENT DATE: 201403
